FAERS Safety Report 4984835-2 (Version None)
Quarter: 2006Q2

REPORT INFORMATION
  Report Type: 
  Country: None (occurrence: None)
  Receive Date: 20060427
  Receipt Date: 20060420
  Transmission Date: 20061013
  Serious: Yes (Other)
  Sender: FDA-Public Use
  Company Number: US-AVENTIS-200613699US

PATIENT
  Sex: Female

DRUGS (3)
  1. LANTUS [Suspect]
     Indication: DIABETES MELLITUS
     Dosage: DOSE: UNK
     Dates: start: 20060101
  2. HUMALOG [Concomitant]
     Dosage: DOSE: UNK
     Dates: start: 20060101
  3. THYROID PREPARATIONS [Concomitant]
     Indication: THYROID DISORDER
     Dosage: DOSE: UNK

REACTIONS (2)
  - PLATELET COUNT DECREASED [None]
  - THROMBOCYTOPENIA [None]
